FAERS Safety Report 9783791 (Version 1)
Quarter: 2013Q4

REPORT INFORMATION
  Report Type: Spontaneous
  Country: GB (occurrence: GB)
  Receive Date: 20131226
  Receipt Date: 20131226
  Transmission Date: 20140711
  Serious: Yes (Hospitalization, Other)
  Sender: FDA-Public Use
  Company Number: PHHY2013GB149685

PATIENT
  Age: 63 Year
  Sex: Female

DRUGS (3)
  1. TEICOPLANIN [Suspect]
     Indication: ENDOCARDITIS
     Dosage: 400 MG, QD
  2. RIFAMPICIN [Interacting]
     Indication: ENDOCARDITIS
     Dosage: 600 MG, QD
     Route: 048
  3. TAZOCIN [Suspect]
     Indication: ENDOCARDITIS
     Dosage: 4.5 G, TID
     Route: 042

REACTIONS (6)
  - Neutropenic sepsis [Recovered/Resolved]
  - Neutropenia [Recovered/Resolved]
  - General physical health deterioration [Recovered/Resolved]
  - Body temperature increased [Recovered/Resolved]
  - Malaise [Recovered/Resolved]
  - Drug interaction [Unknown]
